FAERS Safety Report 4266771-2 (Version None)
Quarter: 2004Q1

REPORT INFORMATION
  Report Type: 
  Country: None (occurrence: None)
  Receive Date: 20040108
  Receipt Date: 20021028
  Transmission Date: 20041129
  Serious: No
  Sender: FDA-Public Use
  Company Number: US-BRISTOL-MYERS SQUIBB COMPANY-12094769

PATIENT
  Age: 58 Year
  Sex: Male

DRUGS (10)
  1. CARDIOLITE [Suspect]
     Dates: start: 20021025
  2. METOPROLOL TARTRATE [Concomitant]
  3. ALTACE [Concomitant]
  4. PRAVACHOL [Concomitant]
  5. IMDUR [Concomitant]
  6. NEURONTIN [Concomitant]
  7. TEMAZEPAM [Concomitant]
  8. VITAMIN E [Concomitant]
  9. ASPIRIN [Concomitant]
  10. HYDROSINE [Concomitant]

REACTIONS (5)
  - ASTHENIA [None]
  - BACK PAIN [None]
  - CHILLS [None]
  - NAUSEA [None]
  - TREMOR [None]
